FAERS Safety Report 6883941-5 (Version None)
Quarter: 2010Q3

REPORT INFORMATION
  Report Type: 
  Country: None (occurrence: None)
  Receive Date: 20100729
  Receipt Date: 20100722
  Transmission Date: 20110219
  Serious: Yes (Death, Hospitalization)
  Sender: FDA-Public Use
  Company Number: GB-CUBIST-2010S1000989

PATIENT
  Age: 74 Year
  Sex: Female

DRUGS (1)
  1. CUBICIN [Suspect]
     Indication: WOUND INFECTION STAPHYLOCOCCAL
     Dates: start: 20091222, end: 20091229

REACTIONS (2)
  - DEMENTIA [None]
  - PNEUMONIA [None]
